FAERS Safety Report 8711830 (Version 2)
Quarter: 2013Q1

REPORT INFORMATION
  Report Type: Report from Study
  Country: JP (occurrence: JP)
  Receive Date: 20120807
  Receipt Date: 20130204
  Transmission Date: 20140127
  Serious: Yes (Death)
  Sender: FDA-Public Use
  Company Number: JP-CELGENEUS-087-50794-12080589

PATIENT
  Age: 72 Year
  Sex: Female
  Weight: 58 kg

DRUGS (25)
  1. VIDAZA [Suspect]
     Indication: MYELODYSPLASTIC SYNDROME
     Dosage: 75 MILLIGRAM/SQ. METER
     Route: 041
     Dates: start: 20110912, end: 20110920
  2. VIDAZA [Suspect]
     Dosage: 75 MILLIGRAM/SQ. METER
     Route: 041
     Dates: start: 20111010, end: 20111018
  3. VIDAZA [Suspect]
     Dosage: 75 MILLIGRAM/SQ. METER
     Route: 041
     Dates: start: 20111107, end: 20111115
  4. VIDAZA [Suspect]
     Dosage: 75 MILLIGRAM/SQ. METER
     Route: 041
     Dates: start: 20120130, end: 20120207
  5. VIDAZA [Suspect]
     Dosage: 75 MILLIGRAM/SQ. METER
     Route: 041
     Dates: start: 20120402, end: 20120410
  6. MAXIPIME [Concomitant]
     Indication: PRODUCT USED FOR UNKNOWN INDICATION
     Route: 065
     Dates: end: 20110930
  7. MAXIPIME [Concomitant]
     Route: 065
     Dates: start: 20111016, end: 20111114
  8. MAXIPIME [Concomitant]
     Route: 065
     Dates: start: 20120112, end: 20120128
  9. MAXIPIME [Concomitant]
     Route: 065
     Dates: start: 20120205, end: 20120319
  10. MAXIPIME [Concomitant]
     Route: 065
     Dates: start: 20120428, end: 20120508
  11. DALACIN-S [Concomitant]
     Indication: PRODUCT USED FOR UNKNOWN INDICATION
     Route: 065
     Dates: start: 20110921, end: 20110930
  12. DALACIN-S [Concomitant]
     Route: 065
     Dates: start: 20111016, end: 20111114
  13. DALACIN-S [Concomitant]
     Route: 065
     Dates: start: 20120112, end: 20120128
  14. DALACIN-S [Concomitant]
     Route: 065
     Dates: start: 20120205, end: 20120319
  15. MEROPEN [Concomitant]
     Indication: PRODUCT USED FOR UNKNOWN INDICATION
     Route: 065
     Dates: start: 20111114, end: 20111121
  16. MEROPEN [Concomitant]
     Route: 065
     Dates: start: 20120322, end: 20120330
  17. PASIL [Concomitant]
     Indication: PRODUCT USED FOR UNKNOWN INDICATION
     Route: 065
     Dates: start: 20111122, end: 20111201
  18. PASIL [Concomitant]
     Route: 065
     Dates: start: 20120411, end: 20120427
  19. ZOSYN [Concomitant]
     Indication: PRODUCT USED FOR UNKNOWN INDICATION
     Route: 065
     Dates: start: 20111202, end: 20111227
  20. ZOSYN [Concomitant]
     Route: 065
     Dates: start: 20120320, end: 20120321
  21. MINOMYCIN [Concomitant]
     Indication: PRODUCT USED FOR UNKNOWN INDICATION
     Route: 065
     Dates: start: 20111202, end: 20111212
  22. FUNGUARD [Concomitant]
     Indication: PRODUCT USED FOR UNKNOWN INDICATION
     Route: 065
     Dates: start: 20111213, end: 20111231
  23. FUNGUARD [Concomitant]
     Route: 065
     Dates: start: 20120508, end: 20120520
  24. CEFTRIAXONE SODIUM HYDRATE [Concomitant]
     Indication: PRODUCT USED FOR UNKNOWN INDICATION
     Route: 065
     Dates: start: 20120104, end: 20120111
  25. TARGOCID [Concomitant]
     Indication: PRODUCT USED FOR UNKNOWN INDICATION
     Route: 065
     Dates: start: 20120509, end: 20120520

REACTIONS (2)
  - Pneumonia [Fatal]
  - Myelodysplastic syndrome [Fatal]
